FAERS Safety Report 8306887-4 (Version None)
Quarter: 2012Q2

REPORT INFORMATION
  Report Type: 
  Country: None (occurrence: None)
  Receive Date: 20120420
  Receipt Date: 20120417
  Transmission Date: 20120825
  Serious: Yes (Hospitalization, Other)
  Sender: FDA-Public Use
  Company Number: 2011SP046655

PATIENT
  Age: 23 Year
  Sex: Female
  Weight: 64.8644 kg

DRUGS (6)
  1. NUVARING [Suspect]
     Indication: CONTRACEPTION
     Dates: start: 20080901
  2. NUVARING [Suspect]
     Indication: CONTRACEPTION
     Dates: start: 20060101, end: 20091019
  3. NUVARING [Suspect]
     Indication: CONTRACEPTION
     Dates: end: 20080801
  4. STEROIDS [Suspect]
     Indication: COLITIS
     Dates: start: 20091001
  5. STEROIDS [Suspect]
     Indication: MENORRHAGIA
     Dates: start: 20091001
  6. STEROIDS [Suspect]
     Indication: DYSMENORRHOEA
     Dates: start: 20091001

REACTIONS (37)
  - MENOMETRORRHAGIA [None]
  - AMENORRHOEA [None]
  - DYSPNOEA EXERTIONAL [None]
  - MOOD SWINGS [None]
  - EMOTIONAL DISORDER [None]
  - HUMAN PAPILLOMA VIRUS TEST POSITIVE [None]
  - DEVICE DISLOCATION [None]
  - OEDEMA PERIPHERAL [None]
  - MAY-THURNER SYNDROME [None]
  - ENTEROCOLITIS INFECTIOUS [None]
  - ANXIETY [None]
  - HAEMATOCRIT DECREASED [None]
  - ROAD TRAFFIC ACCIDENT [None]
  - ECONOMIC PROBLEM [None]
  - MIGRAINE [None]
  - H1N1 INFLUENZA [None]
  - MENSTRUATION IRREGULAR [None]
  - HERPES ZOSTER [None]
  - DIZZINESS [None]
  - ILEUS [None]
  - DEEP VEIN THROMBOSIS [None]
  - STRESS [None]
  - PULMONARY EMBOLISM [None]
  - CERVICAL DYSPLASIA [None]
  - HYPERCOAGULATION [None]
  - DEPRESSION [None]
  - KERATOMILEUSIS [None]
  - MONONUCLEOSIS SYNDROME [None]
  - MUSCLE FATIGUE [None]
  - AFFECT LABILITY [None]
  - INJURY [None]
  - GASTROINTESTINAL ULCER [None]
  - INFLAMMATORY BOWEL DISEASE [None]
  - PAIN IN EXTREMITY [None]
  - HAEMOGLOBIN DECREASED [None]
  - INTERNATIONAL NORMALISED RATIO INCREASED [None]
  - INSOMNIA [None]
